FAERS Safety Report 21313956 (Version 1)
Quarter: 2022Q3

REPORT INFORMATION
  Report Type: Spontaneous
  Country: US (occurrence: US)
  Receive Date: 20220909
  Receipt Date: 20220909
  Transmission Date: 20221027
  Serious: No
  Sender: FDA-Public Use
  Company Number: US-BIOVITRUM-2022US10452

PATIENT
  Sex: Female
  Weight: 8 kg

DRUGS (12)
  1. SYNAGIS [Suspect]
     Active Substance: PALIVIZUMAB
     Indication: Pulmonary valve stenosis
  2. AMOXICILLIN [Concomitant]
     Active Substance: AMOXICILLIN
     Dosage: 125 MG/5ML
  3. SYNAGIS [Suspect]
     Active Substance: PALIVIZUMAB
     Indication: Cardiomegaly
  4. CAPTOPRIL [Concomitant]
     Active Substance: CAPTOPRIL
  5. SYNAGIS [Suspect]
     Active Substance: PALIVIZUMAB
     Indication: Cardiac failure
  6. SYNAGIS [Suspect]
     Active Substance: PALIVIZUMAB
     Indication: Low birth weight baby
  7. SYNAGIS [Suspect]
     Active Substance: PALIVIZUMAB
     Indication: Premature baby
  8. ASPIRIN [Concomitant]
     Active Substance: ASPIRIN
  9. SYNAGIS [Suspect]
     Active Substance: PALIVIZUMAB
     Indication: Congenital great vessel anomaly
  10. LASIX [Concomitant]
     Active Substance: FUROSEMIDE
  11. SYNAGIS [Suspect]
     Active Substance: PALIVIZUMAB
     Indication: Double outlet right ventricle
  12. SYNAGIS [Suspect]
     Active Substance: PALIVIZUMAB
     Indication: Dilatation atrial

REACTIONS (1)
  - Weight decreased [Unknown]
